FAERS Safety Report 23553880 (Version 2)
Quarter: 2024Q2

REPORT INFORMATION
  Report Type: Spontaneous
  Country: US (occurrence: US)
  Receive Date: 20240222
  Receipt Date: 20240625
  Transmission Date: 20240715
  Serious: Yes (Hospitalization)
  Sender: FDA-Public Use
  Company Number: US-PFIZER INC-202400046383

PATIENT
  Age: 82 Year
  Sex: Male
  Weight: 83.91 kg

DRUGS (5)
  1. VYNDAMAX [Suspect]
     Active Substance: TAFAMIDIS
     Indication: Cardiac amyloidosis
     Dosage: 61 MG, 1X/DAY
     Dates: start: 202108
  2. VYNDAMAX [Suspect]
     Active Substance: TAFAMIDIS
     Indication: Acquired ATTR amyloidosis
     Dosage: TAKE 1 CAPSULE BY MOUTH EVERY MORNING
     Route: 048
     Dates: start: 20240318
  3. ELIQUIS [Concomitant]
     Active Substance: APIXABAN
     Dosage: UNK
  4. PATISIRAN [Concomitant]
     Active Substance: PATISIRAN
     Dosage: UNK, EVERY 3 WEEKS
  5. ONPATTRO [Concomitant]
     Active Substance: PATISIRAN SODIUM
     Dosage: ONPATTRO SOL 10MG/5ML

REACTIONS (3)
  - Bronchitis [Not Recovered/Not Resolved]
  - Upper respiratory tract congestion [Not Recovered/Not Resolved]
  - Erythema [Unknown]

NARRATIVE: CASE EVENT DATE: 20240201
